FAERS Safety Report 6898512-4 (Version None)
Quarter: 2010Q3

REPORT INFORMATION
  Report Type: 
  Country: None (occurrence: None)
  Receive Date: 20100802
  Receipt Date: 20071017
  Transmission Date: 20110219
  Serious: No
  Sender: FDA-Public Use
  Company Number: US-PFIZER INC-2007088935

PATIENT
  Sex: Female
  Weight: 51.3 kg

DRUGS (4)
  1. LYRICA [Suspect]
     Indication: NEUROPATHY PERIPHERAL
     Dates: start: 20050101
  2. LYRICA [Suspect]
     Indication: CARPAL TUNNEL SYNDROME
  3. DETROL LA [Concomitant]
  4. TOPAMAX [Concomitant]
     Indication: HYPERTONIC BLADDER

REACTIONS (1)
  - MUSCLE SPASMS [None]
